FAERS Safety Report 5636929-6 (Version None)
Quarter: 2008Q1

REPORT INFORMATION
  Report Type: 
  Country: None (occurrence: None)
  Receive Date: 20080225
  Receipt Date: 20080126
  Transmission Date: 20080703
  Serious: Yes (Death, Hospitalization)
  Sender: FDA-Public Use
  Company Number: US-BRACCO-000184

PATIENT
  Sex: Female

DRUGS (5)
  1. ISOVUE-128 [Suspect]
     Indication: ANGIOGRAM
     Route: 042
     Dates: start: 20080124, end: 20080124
  2. ISOVUE-128 [Suspect]
     Indication: CARDIAC STRESS TEST ABNORMAL
     Route: 042
     Dates: start: 20080124, end: 20080124
  3. I.V. SOLUTIONS [Concomitant]
     Route: 042
     Dates: start: 20080124
  4. CORTICOSTEROID NOS [Concomitant]
     Route: 042
     Dates: start: 20080124
  5. ANTIBIOTICS [Concomitant]
     Route: 065
     Dates: start: 20080124

REACTIONS (2)
  - LUNG INFILTRATION [None]
  - SEPTIC SHOCK [None]
